FAERS Safety Report 8025069-7 (Version None)
Quarter: 2012Q1

REPORT INFORMATION
  Report Type: 
  Country: None (occurrence: None)
  Receive Date: 20120105
  Receipt Date: 20111227
  Transmission Date: 20120608
  Serious: Yes (Hospitalization)
  Sender: FDA-Public Use
  Company Number: US-MERCK-1111USA01723

PATIENT
  Age: 59 Year
  Sex: Female

DRUGS (1)
  1. FOSAMAX [Suspect]
     Route: 048
     Dates: start: 20020101, end: 20110101

REACTIONS (7)
  - FALL [None]
  - FEMUR FRACTURE [None]
  - ANXIETY [None]
  - OSTEOARTHRITIS [None]
  - BUNION [None]
  - DEPRESSION [None]
  - HYPERLIPIDAEMIA [None]
